FAERS Safety Report 6758539-X (Version None)
Quarter: 2010Q2

REPORT INFORMATION
  Report Type: 
  Country: None (occurrence: None)
  Receive Date: 20100607
  Receipt Date: 20100528
  Transmission Date: 20101027
  Serious: Yes (Death, Hospitalization)
  Sender: FDA-Public Use
  Company Number: B0659063A

PATIENT
  Age: 73 Year
  Sex: Female

DRUGS (1)
  1. SEROXAT [Suspect]
     Indication: DEPRESSION
     Dosage: 20MG PER DAY
     Route: 048
     Dates: start: 20100526, end: 20100526

REACTIONS (4)
  - CEREBRAL INFARCTION [None]
  - DEATH [None]
  - FACIAL ASYMMETRY [None]
  - MYOCARDIAL INFARCTION [None]
